FAERS Safety Report 10182106 (Version 1)
Quarter: 2014Q2

REPORT INFORMATION
  Report Type: Report from Study
  Country: US (occurrence: US)
  Receive Date: 20140520
  Receipt Date: 20140520
  Transmission Date: 20141212
  Serious: Yes (Other)
  Sender: FDA-Public Use
  Company Number: US-ROCHE-1402525

PATIENT
  Sex: Male
  Weight: 74.91 kg

DRUGS (2)
  1. AVASTIN [Suspect]
     Indication: COLORECTAL CANCER METASTATIC
     Route: 042
     Dates: start: 2013, end: 2013
  2. AVASTIN [Suspect]
     Route: 042

REACTIONS (2)
  - Vocal cord paralysis [Not Recovered/Not Resolved]
  - No therapeutic response [Unknown]
